FAERS Safety Report 8816811 (Version 2)
Quarter: 2012Q4

REPORT INFORMATION
  Report Type: Spontaneous
  Country: KR (occurrence: None)
  Receive Date: 20121001
  Receipt Date: 20121009
  Transmission Date: 20130627
  Serious: Yes (Hospitalization)
  Sender: FDA-Public Use
  Company Number: KR-JNJFOC-20120907770

PATIENT
  Age: 51 Year
  Sex: Male
  Weight: 72.5 kg

DRUGS (8)
  1. DECITABINE [Suspect]
     Indication: MYELODYSPLASTIC SYNDROME
     Route: 042
     Dates: start: 20120821, end: 20120825
  2. DECITABINE [Suspect]
     Indication: MYELODYSPLASTIC SYNDROME
     Route: 042
     Dates: start: 20120924, end: 20120924
  3. ALBIS [Concomitant]
  4. EXJADE [Concomitant]
  5. MOSAPRIDE CITRATE [Concomitant]
  6. CRAVIT [Concomitant]
  7. PLUNAZOLE (FLUCONAZOLE) UNSPECIFIED [Concomitant]
  8. GRASIN (FILGRASTIM) UNSPECIFIED [Concomitant]

REACTIONS (7)
  - Oral pain [None]
  - Proctalgia [None]
  - Pyrexia [None]
  - Haemoglobin decreased [None]
  - Neutrophil percentage decreased [None]
  - Platelet count decreased [None]
  - Bacterial infection [None]
